FAERS Safety Report 9366068 (Version 5)
Quarter: 2013Q4

REPORT INFORMATION
  Report Type: Spontaneous
  Country: US (occurrence: US)
  Receive Date: 20130625
  Receipt Date: 20131016
  Transmission Date: 20140711
  Serious: Yes (Death, Other)
  Sender: FDA-Public Use
  Company Number: US-PFIZER INC-2013186081

PATIENT
  Age: 74 Year
  Sex: Female
  Weight: 115 kg

DRUGS (29)
  1. AMARYL [Concomitant]
     Dosage: 4 MG, EVERY MORNING (BEFORE BREAKFAST)
     Route: 048
  2. JANUVIA [Concomitant]
     Indication: TYPE 2 DIABETES MELLITUS
     Dosage: 50 MG, 1X/DAY REGULARLY
     Route: 048
  3. COLESTYRAMINE [Concomitant]
     Dosage: 4 MG, 1X/DAY
  4. SYNTHROID [Concomitant]
     Dosage: 0.1 MG, 1X/DAY
  5. SYNTHROID [Concomitant]
     Dosage: 100 UG, 1X/DAY
     Route: 048
  6. LANTUS [Concomitant]
     Dosage: 6 UNITS EVERY EVENING
  7. LANTUS [Concomitant]
     Dosage: 100 UNIT/ML,10 UNITS NIGHTLY
     Route: 058
  8. NORVASC [Concomitant]
     Dosage: 10 MG, 1X/DAY
     Route: 048
  9. NORVASC [Concomitant]
     Dosage: 10 MG, 1/2 TABLET A DAY
  10. PRIMIDONE [Concomitant]
     Dosage: 50 MG, TAKING 1/2 TABLET ONCE A DAY
  11. PRIMIDONE [Concomitant]
     Dosage: 50 MG, 1X/DAY
     Route: 048
  12. MIRALAX [Concomitant]
     Dosage: 17 G, 1X/DAY
     Route: 048
  13. OXYIR [Concomitant]
     Dosage: 5 MG, EVERY 4 HRS AS NEEDED
     Route: 048
  14. TYLENOL [Concomitant]
     Dosage: 500 MG, EVERY 6 HRS AS NEEDED.
     Route: 048
  15. CITRACAL + D [Concomitant]
     Dosage: UNK
     Route: 048
  16. FOLVITE [Concomitant]
     Dosage: 1 MG, 1X/DAY
     Route: 048
  17. ULTRAM [Concomitant]
     Dosage: 50 MG, (TAKE 2 TABS AT 5:30 PM AND 2 TABS AT BEDTIME)
     Route: 048
  18. COLACE [Concomitant]
     Dosage: 100 MG, 2X/DAY
     Route: 048
  19. TOPROL XL [Concomitant]
     Dosage: 200 MG, 1X/DAY
     Route: 048
  20. PREVALITE [Concomitant]
     Dosage: 4 G, 1X/DAY
     Route: 048
  21. ZOFRAN [Concomitant]
     Indication: NAUSEA
     Dosage: 8 MG, EVERY 8 HOURS AS NEEDED
     Route: 048
  22. ACETYLSALICYLIC ACID [Concomitant]
     Dosage: 81 MG, 1X/DAY
     Route: 048
  23. XALKORI [Suspect]
     Indication: NON-SMALL CELL LUNG CANCER METASTATIC
     Dosage: 250 MG, 2X/DAY
     Route: 048
     Dates: start: 20130328
  24. BENICAR [Suspect]
     Indication: BLOOD PRESSURE
     Dosage: 40 MG, 1X/DAY
     Route: 048
  25. LASIX [Concomitant]
     Indication: OEDEMA PERIPHERAL
     Dosage: 40 MG, 1X/DAY
  26. LASIX [Concomitant]
     Dosage: 40 MG, 2X/DAY
     Route: 048
  27. TRAMADOL [Concomitant]
     Dosage: 50 MG, TABLETS 2 2X/DAY, FAIRLY REGULARLY
  28. KLONOPIN [Concomitant]
     Dosage: 0.5 MG, TABLETS 2 AT NIGHT REGULARLY
  29. AMARYL [Concomitant]
     Dosage: 4 MG, 1X/DAY

REACTIONS (7)
  - Disease progression [Fatal]
  - Non-small cell lung cancer metastatic [Fatal]
  - Renal failure acute [Unknown]
  - Oedema peripheral [Unknown]
  - Anaemia [Unknown]
  - Somnolence [Unknown]
  - Fatigue [Unknown]
